FAERS Safety Report 20536576 (Version 1)
Quarter: 2022Q1

REPORT INFORMATION
  Report Type: Spontaneous
  Country: US (occurrence: None)
  Receive Date: 20220301
  Receipt Date: 20220301
  Transmission Date: 20220423
  Serious: No
  Sender: FDA-Public Use
  Company Number: None

PATIENT
  Age: 47 Year
  Sex: Female

DRUGS (1)
  1. CAPECITABINE [Suspect]
     Active Substance: CAPECITABINE
     Indication: Breast cancer
     Dosage: FREQUENCY : TWICE A DAY;?
     Route: 048
     Dates: start: 202107

REACTIONS (9)
  - Pericardial effusion [None]
  - Stomatitis [None]
  - Acne [None]
  - Pruritus [None]
  - Back pain [None]
  - Cough [None]
  - Radiation pneumonitis [None]
  - Pulmonary fibrosis [None]
  - Fatigue [None]

NARRATIVE: CASE EVENT DATE: 20220125
